FAERS Safety Report 6911044-X (Version None)
Quarter: 2010Q3

REPORT INFORMATION
  Report Type: 
  Country: None (occurrence: None)
  Receive Date: 20100806
  Receipt Date: 20100729
  Transmission Date: 20110219
  Serious: Yes (Other)
  Sender: FDA-Public Use
  Company Number: B0666113A

PATIENT
  Sex: Male

DRUGS (5)
  1. AMERGE [Suspect]
     Indication: MIGRAINE
     Route: 048
     Dates: start: 20100629
  2. URALYT [Concomitant]
     Indication: MIGRAINE
     Dosage: 1G PER DAY
     Route: 048
     Dates: start: 20090704
  3. ZYLORIC [Concomitant]
     Indication: MIGRAINE
     Dosage: 100MG PER DAY
     Route: 048
     Dates: start: 20090704
  4. URSO 250 [Concomitant]
     Indication: LIVER DISORDER
     Dosage: 100MG PER DAY
     Route: 048
     Dates: start: 20100329
  5. CHINESE MEDICINE [Concomitant]
     Route: 048
     Dates: start: 20100510

REACTIONS (3)
  - DYSPNOEA [None]
  - HYPOXIA [None]
  - VISUAL FIELD DEFECT [None]
